FAERS Safety Report 10313513 (Version 2)
Quarter: 2015Q2

REPORT INFORMATION
  Report Type: Report from Study
  Country: TR (occurrence: TR)
  Receive Date: 20140718
  Receipt Date: 20150409
  Transmission Date: 20150821
  Serious: Yes (Other)
  Sender: FDA-Public Use
  Company Number: TR-NOVOPROD-416416

PATIENT
  Age: 36 Year
  Sex: Female
  Weight: 85 kg

DRUGS (1)
  1. NOVOMIX 30 FLEXPEN [Suspect]
     Active Substance: INSULIN ASPART
     Indication: GESTATIONAL DIABETES
     Dosage: 24 U, QD
     Route: 058
     Dates: start: 20140529

REACTIONS (2)
  - Foetal death [Unknown]
  - Exposure during pregnancy [Recovered/Resolved]

NARRATIVE: CASE EVENT DATE: 20140529
